FAERS Safety Report 7413487-7 (Version None)
Quarter: 2011Q2

REPORT INFORMATION
  Report Type: 
  Country: None (occurrence: None)
  Receive Date: 20110413
  Receipt Date: 20110404
  Transmission Date: 20111010
  Serious: Yes (Hospitalization, Other)
  Sender: FDA-Public Use
  Company Number: PHHY2011FR23936

PATIENT
  Sex: Male
  Weight: 106 kg

DRUGS (11)
  1. RASILEZ [Suspect]
     Indication: HYPERTENSION
     Dosage: 150 MG, QD
     Route: 048
     Dates: start: 20091101, end: 20100201
  2. RASILEZ [Suspect]
     Dosage: 300 MG, QD
     Route: 048
     Dates: start: 20100201, end: 20110316
  3. EUPRESSYL [Concomitant]
     Dosage: 60 MG, TID
     Dates: start: 20110101
  4. LERCAN [Concomitant]
     Indication: HYPERTENSION
     Dosage: 20 MG, DAILY
     Dates: start: 20070901, end: 20110317
  5. POTASSIUM [Concomitant]
     Dosage: 9 DF, UNK
     Dates: start: 20070801
  6. LASIX [Concomitant]
     Indication: HYPERTENSION
     Dosage: 40 MG, BID
     Dates: start: 20100101
  7. CRESTOR [Concomitant]
     Dosage: 10 MG, UNK
     Dates: start: 20091101
  8. CLONIDINE HCL [Concomitant]
     Indication: HYPERTENSION
     Dosage: 2 DF, DAILY
     Dates: start: 20110101, end: 20110301
  9. INSPRA [Concomitant]
     Indication: HYPERTENSION
     Dosage: 25 MG, TID
     Dates: start: 20071201, end: 20110317
  10. SYMBICORT [Concomitant]
     Dosage: 400 UG, BID
  11. KENZEN [Concomitant]
     Indication: HYPERTENSION
     Dosage: 16 MG, BID
     Dates: start: 20080301

REACTIONS (8)
  - CARDIOMEGALY [None]
  - EJECTION FRACTION DECREASED [None]
  - SUFFOCATION FEELING [None]
  - CONDITION AGGRAVATED [None]
  - DYSPNOEA [None]
  - ORTHOPNOEA [None]
  - LEFT VENTRICULAR HYPERTROPHY [None]
  - DECREASED ACTIVITY [None]
